FAERS Safety Report 18443866 (Version 2)
Quarter: 2021Q3

REPORT INFORMATION
  Report Type: Spontaneous
  Country: US (occurrence: US)
  Receive Date: 20201030
  Receipt Date: 20210817
  Transmission Date: 20211014
  Serious: No
  Sender: FDA-Public Use
  Company Number: US-AKCEA THERAPEUTICS-2020IS001295

PATIENT
  Age: 77 Year
  Sex: Male
  Weight: 84.41 kg

DRUGS (30)
  1. ISSD (INTEGRATED SYRINGE SAFETY DEVICE) [Suspect]
     Active Substance: DEVICE
  2. VITAMIN D3 [Concomitant]
     Active Substance: CHOLECALCIFEROL
     Route: 048
  3. MUCINEX [Concomitant]
     Active Substance: GUAIFENESIN
     Route: 048
  4. PREDNISONE. [Concomitant]
     Active Substance: PREDNISONE
     Route: 065
  5. VITAMIN A /00056001/ [Concomitant]
     Active Substance: RETINOL
     Route: 048
  6. SINGULAIR [Concomitant]
     Active Substance: MONTELUKAST SODIUM
     Route: 048
  7. DELTASOLONE /00016201/ [Concomitant]
     Route: 048
  8. ALDACTONE [Concomitant]
     Active Substance: SPIRONOLACTONE
     Route: 048
  9. SPIRIVA [Concomitant]
     Active Substance: TIOTROPIUM BROMIDE MONOHYDRATE
     Route: 055
  10. VENTOLIN HFA [Concomitant]
     Active Substance: ALBUTEROL SULFATE
     Route: 048
  11. ASPIRIN /00002701/ [Concomitant]
     Active Substance: ASPIRIN
     Route: 048
  12. VITAMIN B12 [Concomitant]
     Active Substance: CYANOCOBALAMIN
     Route: 048
  13. LISINOPRIL. [Concomitant]
     Active Substance: LISINOPRIL
     Route: 065
  14. KLOR?CON/EF [Concomitant]
     Active Substance: POTASSIUM BICARBONATE
     Route: 065
  15. CALCIUM CARBONATE. [Concomitant]
     Active Substance: CALCIUM CARBONATE
     Route: 048
  16. FERROUS SULFATE. [Concomitant]
     Active Substance: FERROUS SULFATE
     Route: 048
  17. VITAMIN B COMPLEX [Concomitant]
     Active Substance: CYANOCOBALAMIN\DEXPANTHENOL\NIACINAMIDE\PYRIDOXINE HYDROCHLORIDE\RIBOFLAVIN 5^-PHOSPHATE SODIUM\THIAMINE HYDROCHLORIDE\VITAMIN B COMPLEX
     Route: 065
  18. SYMBICORD [Concomitant]
     Active Substance: BUDESONIDE\FORMOTEROL
     Route: 055
  19. METOPROLOL SUCCINATE. [Concomitant]
     Active Substance: METOPROLOL SUCCINATE
     Route: 065
  20. TEGSEDI [Suspect]
     Active Substance: INOTERSEN SODIUM
     Indication: HEREDITARY NEUROPATHIC AMYLOIDOSIS
     Route: 058
     Dates: start: 20200617
  21. ALBUTEROL /00139501/ [Concomitant]
     Active Substance: ALBUTEROL
     Route: 055
  22. FLEXERIL [Concomitant]
     Active Substance: CYCLOBENZAPRINE HYDROCHLORIDE
     Route: 048
  23. DEMADEX [Concomitant]
     Active Substance: TORSEMIDE
     Route: 048
  24. FUROSEMIDE. [Concomitant]
     Active Substance: FUROSEMIDE
     Route: 065
  25. HYDRALAZINE [Concomitant]
     Active Substance: HYDRALAZINE HYDROCHLORIDE
  26. NEURONTIN [Concomitant]
     Active Substance: GABAPENTIN
     Route: 048
  27. IMDUR [Concomitant]
     Active Substance: ISOSORBIDE MONONITRATE
     Route: 048
  28. ZESTRIL [Concomitant]
     Active Substance: LISINOPRIL
     Route: 048
  29. FLONASE [Concomitant]
     Active Substance: FLUTICASONE PROPIONATE
     Route: 045
  30. GABAPENTIN. [Concomitant]
     Active Substance: GABAPENTIN
     Route: 065

REACTIONS (16)
  - Blood bicarbonate increased [Unknown]
  - Glomerular filtration rate decreased [Unknown]
  - Nail discolouration [Unknown]
  - Pruritus [Unknown]
  - Dry eye [Unknown]
  - Mean cell volume decreased [Unknown]
  - Injection site pruritus [Unknown]
  - Blood glucose increased [Unknown]
  - Injection site pain [Unknown]
  - Discomfort [Unknown]
  - Eye irritation [Recovered/Resolved]
  - Vitamin B12 deficiency [Unknown]
  - Tremor [Recovered/Resolved]
  - Onychomycosis [Unknown]
  - Mean cell haemoglobin decreased [Unknown]
  - Red cell distribution width increased [Unknown]

NARRATIVE: CASE EVENT DATE: 20200817
